FAERS Safety Report 5411950-1 (Version None)
Quarter: 2007Q3

REPORT INFORMATION
  Report Type: 
  Country: None (occurrence: None)
  Receive Date: 20070813
  Receipt Date: 20070803
  Transmission Date: 20080115
  Serious: Yes (Other)
  Sender: FDA-Public Use
  Company Number: US-SANOFI-SYNTHELABO-A03200703277

PATIENT
  Sex: Female
  Weight: 75.3 kg

DRUGS (5)
  1. AMBIEN [Suspect]
     Indication: INSOMNIA
     Route: 048
     Dates: start: 20061101, end: 20070504
  2. AMBIEN [Suspect]
     Indication: RESTLESS LEGS SYNDROME
     Route: 048
     Dates: start: 20061101, end: 20070504
  3. FOSAMAX [Concomitant]
     Dosage: UNK
     Route: 065
  4. REQUIP [Concomitant]
     Dosage: UNK
     Route: 065
     Dates: end: 20070503
  5. ALCOHOL [Concomitant]
     Dosage: 1 GLASS OF WINE, 3 HOURS BEFORE ZOLPIDEM INTAKE UNK
     Route: 048

REACTIONS (10)
  - CONTUSION [None]
  - DELIRIUM [None]
  - DELUSION [None]
  - FOOT FRACTURE [None]
  - HAEMORRHAGE [None]
  - HALLUCINATION [None]
  - NIGHTMARE [None]
  - PAIN IN EXTREMITY [None]
  - RIB FRACTURE [None]
  - SOMNAMBULISM [None]
